FAERS Safety Report 8854978 (Version 1)
Quarter: 2012Q4

REPORT INFORMATION
  Report Type: 
  Country: CA (occurrence: CA)
  Receive Date: 20121023
  Receipt Date: 20121023
  Transmission Date: 20130627
  Serious: No
  Sender: FDA-Public Use
  Company Number: CA-TEVA-364978USA

PATIENT
  Age: 21 Year
  Sex: Female

DRUGS (2)
  1. PLAN B [Suspect]
     Indication: CONTRACEPTION
     Dosage: 1.5 Milligram Daily;
     Route: 048
     Dates: start: 20120821, end: 20120821
  2. AVIANE [Concomitant]

REACTIONS (1)
  - Menstruation irregular [Recovered/Resolved]
